FAERS Safety Report 9506514 (Version 2)
Quarter: 2013Q4

REPORT INFORMATION
  Report Type: Report from Study
  Country: AR (occurrence: AR)
  Receive Date: 20130906
  Receipt Date: 20131010
  Transmission Date: 20140711
  Serious: Yes (Hospitalization)
  Sender: FDA-Public Use
  Company Number: PHHY2013AR098241

PATIENT
  Sex: Female

DRUGS (2)
  1. DIOVAN [Suspect]
     Indication: HYPERTENSION
     Dosage: 1 DF(80MG), PER DAY
     Route: 048
  2. IRON [Concomitant]
     Indication: ANAEMIA
     Dosage: UNK UKN, UNK

REACTIONS (2)
  - Wound secretion [Recovered/Resolved]
  - Inflammation [Recovered/Resolved]
